FAERS Safety Report 5273399-4 (Version None)
Quarter: 2007Q1

REPORT INFORMATION
  Report Type: 
  Country: None (occurrence: None)
  Receive Date: 20070320
  Receipt Date: 20070305
  Transmission Date: 20070707
  Serious: Yes (Hospitalization)
  Sender: FDA-Public Use
  Company Number: DSA_29546_2007

PATIENT
  Age: 26 Year
  Sex: Male

DRUGS (2)
  1. LORAZEPAM [Suspect]
     Dosage: 20 MG ONCE PO
     Route: 048
     Dates: start: 20070305, end: 20070305
  2. ALCOHOL [Suspect]
     Dates: start: 20070305, end: 20070305

REACTIONS (3)
  - DRUG ABUSER [None]
  - INTENTIONAL OVERDOSE [None]
  - TACHYCARDIA [None]
